FAERS Safety Report 8468764-8 (Version None)
Quarter: 2012Q2

REPORT INFORMATION
  Report Type: 
  Country: None (occurrence: None)
  Receive Date: 20120626
  Receipt Date: 20120611
  Transmission Date: 20120825
  Serious: Yes (Other)
  Sender: FDA-Public Use
  Company Number: US-ROCHE-1080194

PATIENT
  Age: 71 Year
  Sex: Female

DRUGS (2)
  1. BENDAMUSTINE [Suspect]
     Indication: B-CELL LYMPHOMA
     Dosage: DAY 1 AND 2
  2. RITUXIMAB [Suspect]
     Indication: B-CELL LYMPHOMA
     Dosage: ON DAY 1

REACTIONS (2)
  - CYTOMEGALOVIRUS INFECTION [None]
  - CYTOMEGALOVIRUS GASTRITIS [None]
